FAERS Safety Report 9624353 (Version 1)
Quarter: 2013Q4

REPORT INFORMATION
  Report Type: Spontaneous
  Country: US (occurrence: US)
  Receive Date: 20131015
  Receipt Date: 20131015
  Transmission Date: 20140711
  Serious: Yes (Hospitalization)
  Sender: FDA-Public Use
  Company Number: US-GLAXOSMITHKLINE-A1045432A

PATIENT
  Sex: Male

DRUGS (1)
  1. ARIXTRA [Suspect]
     Indication: ILL-DEFINED DISORDER
     Dosage: 7.5MG UNKNOWN
     Route: 065
     Dates: start: 20130924

REACTIONS (1)
  - Hospitalisation [Unknown]
